FAERS Safety Report 6385640-5 (Version None)
Quarter: 2009Q4

REPORT INFORMATION
  Report Type: 
  Country: None (occurrence: None)
  Receive Date: 20091002
  Receipt Date: 20081013
  Transmission Date: 20100525
  Serious: No
  Sender: FDA-Public Use
  Company Number: US-ASTRAZENECA-2008UW22385

PATIENT
  Age: 51 Year
  Sex: Female

DRUGS (5)
  1. ARIMIDEX [Suspect]
     Indication: BREAST CANCER
     Route: 048
     Dates: start: 20000101
  2. VALTREX [Concomitant]
  3. NOVIS [Concomitant]
  4. ZOMETA [Concomitant]
  5. ZOLADEX [Concomitant]

REACTIONS (6)
  - BONE NEOPLASM MALIGNANT [None]
  - DEPRESSION [None]
  - DYSSTASIA [None]
  - OEDEMA PERIPHERAL [None]
  - PAIN [None]
  - ULCER [None]
